FAERS Safety Report 7331872-9 (Version None)
Quarter: 2011Q1

REPORT INFORMATION
  Report Type: 
  Country: None (occurrence: None)
  Receive Date: 20110304
  Receipt Date: 20110301
  Transmission Date: 20110831
  Serious: Yes (Other)
  Sender: FDA-Public Use
  Company Number: US-GENZYME-THYM-1002338

PATIENT

DRUGS (14)
  1. PREDNISONE [Concomitant]
     Indication: HYPOVOLAEMIA
  2. MYCOPHENOLATE MOFETIL [Concomitant]
     Indication: RENAL TUBULAR NECROSIS
  3. TACROLIMUS [Concomitant]
     Indication: IMMUNOSUPPRESSANT DRUG THERAPY
     Route: 065
  4. TACROLIMUS [Concomitant]
     Indication: CHRONIC ALLOGRAFT NEPHROPATHY
  5. PREDNISONE [Concomitant]
     Indication: CHRONIC ALLOGRAFT NEPHROPATHY
  6. PREDNISONE [Concomitant]
     Indication: RENAL TUBULAR NECROSIS
  7. MYCOPHENOLATE MOFETIL [Concomitant]
     Indication: CHRONIC ALLOGRAFT NEPHROPATHY
  8. MYCOPHENOLATE MOFETIL [Concomitant]
     Indication: HYPOVOLAEMIA
  9. TACROLIMUS [Concomitant]
     Indication: HYPOVOLAEMIA
  10. TACROLIMUS [Concomitant]
     Indication: RENAL TUBULAR NECROSIS
  11. PREDNISONE [Concomitant]
     Indication: IMMUNOSUPPRESSANT DRUG THERAPY
     Dosage: 40 MG, QD
     Route: 048
  12. THYMOGLOBULIN [Suspect]
     Indication: PROPHYLAXIS AGAINST TRANSPLANT REJECTION
     Route: 042
  13. STEROIDS [Concomitant]
     Indication: PROPHYLAXIS AGAINST TRANSPLANT REJECTION
     Route: 065
  14. MYCOPHENOLATE MOFETIL [Concomitant]
     Indication: IMMUNOSUPPRESSANT DRUG THERAPY
     Route: 065

REACTIONS (2)
  - CHRONIC ALLOGRAFT NEPHROPATHY [None]
  - TRANSPLANT REJECTION [None]
